FAERS Safety Report 8800321 (Version 2)
Quarter: 2012Q4

REPORT INFORMATION
  Report Type: 
  Country: BR (occurrence: BR)
  Receive Date: 20120921
  Receipt Date: 20121012
  Transmission Date: 20130627
  Serious: Yes (Other)
  Sender: FDA-Public Use
  Company Number: CHPA2012BR020249

PATIENT
  Sex: Male
  Weight: 100 kg

DRUGS (12)
  1. CIBALENAA [Suspect]
     Indication: HEADACHE
     Dosage: 1 DF, BID, PRN, Since 50 years
     Route: 048
  2. CIBALENAA [Suspect]
     Dosage: 1 DF, BID, Since 5 years
  3. AMITRIPTYLINE [Concomitant]
     Indication: ANXIOLYTIC THERAPY
     Dosage: 50 mg, QN
     Route: 048
  4. GLICLAZIDE [Concomitant]
     Dosage: 60 mg daily
     Route: 048
  5. CARBAMAZEPINE [Concomitant]
     Indication: ANXIOLYTIC THERAPY
     Dosage: 200 mg, QD
     Route: 048
  6. ENALAPRIL [Concomitant]
     Indication: CARDIAC DISORDER
     Dosage: 10 mg daily
     Route: 048
  7. ERYTHROPOIETIN [Concomitant]
     Indication: TRANSFUSION
     Dosage: 10.000 UI, 20.000 IU, 2 times a week
     Route: 058
  8. CARVEDILOL [Concomitant]
     Indication: CARDIAC DISORDER
     Dosage: 50 mg daily
     Route: 048
  9. LASIX [Concomitant]
     Indication: DIURETIC THERAPY
     Dosage: 80 mg daily
     Route: 048
  10. OMEPRAZOLE [Concomitant]
     Indication: GASTROINTESTINAL DISORDER
     Dosage: 60 mg daily
     Route: 048
  11. DOMPERIDONE [Concomitant]
     Indication: GASTROINTESTINAL DISORDER
     Dosage: 30 mg daily
     Route: 048
  12. FILGRASTIM [Concomitant]
     Indication: TRANSFUSION
     Dosage: 0.5 ml, QW2
     Route: 058

REACTIONS (5)
  - Bone marrow disorder [Unknown]
  - Headache [Not Recovered/Not Resolved]
  - Pain [Not Recovered/Not Resolved]
  - Dysphagia [Recovered/Resolved]
  - Choking [Recovered/Resolved]
